FAERS Safety Report 7010809-6 (Version None)
Quarter: 2010Q3

REPORT INFORMATION
  Report Type: 
  Country: None (occurrence: None)
  Receive Date: 20100923
  Receipt Date: 20100923
  Transmission Date: 20110219
  Serious: Yes (Hospitalization)
  Sender: FDA-Public Use
  Company Number: None

PATIENT
  Age: 80 Year
  Sex: Female
  Weight: 64.4 kg

DRUGS (9)
  1. AGGRENOX [Suspect]
     Indication: TRANSIENT ISCHAEMIC ATTACK
     Dates: start: 20100915, end: 20100921
  2. LIPITOR [Concomitant]
  3. ALPHAGAN [Concomitant]
  4. COLACE [Concomitant]
  5. VICODIN [Concomitant]
  6. XALATAN [Concomitant]
  7. SYNTHROID [Concomitant]
  8. PRINIVIL [Concomitant]
  9. PRILOSEC [Concomitant]

REACTIONS (1)
  - HEADACHE [None]
